FAERS Safety Report 7300530-9 (Version None)
Quarter: 2011Q1

REPORT INFORMATION
  Report Type: 
  Country: None (occurrence: None)
  Receive Date: 20110217
  Receipt Date: 20110209
  Transmission Date: 20110831
  Serious: Yes (Hospitalization)
  Sender: FDA-Public Use
  Company Number: CH-ELI_LILLY_AND_COMPANY-CH201102003720

PATIENT
  Sex: Male
  Weight: 83 kg

DRUGS (1)
  1. EFFIENT [Suspect]
     Indication: ANGINA PECTORIS
     Dosage: UNK, UNKNOWN
     Route: 065

REACTIONS (2)
  - OFF LABEL USE [None]
  - TRICUSPID VALVE INCOMPETENCE [None]
